FAERS Safety Report 15336659 (Version 1)
Quarter: 2018Q3

REPORT INFORMATION
  Report Type: Report from Study
  Country: None (occurrence: US)
  Receive Date: 20180830
  Receipt Date: 20180830
  Transmission Date: 20181010
  Serious: Yes (Death, Hospitalization)
  Sender: FDA-Public Use
  Company Number: US-ABBVIE-18K-163-2368084-00

PATIENT
  Age: 63 Year
  Sex: Male
  Weight: 98.06 kg

DRUGS (4)
  1. VENCLEXTA [Suspect]
     Active Substance: VENETOCLAX
     Indication: ACUTE MYELOID LEUKAEMIA
     Dosage: DAY1
     Route: 048
     Dates: start: 20180430, end: 20180501
  2. VENCLEXTA [Suspect]
     Active Substance: VENETOCLAX
     Indication: COAGULOPATHY
     Route: 048
     Dates: start: 20180611, end: 201806
  3. VENCLEXTA [Suspect]
     Active Substance: VENETOCLAX
     Indication: PANCYTOPENIA
     Route: 048
     Dates: start: 20180502, end: 201805
  4. VENCLEXTA [Suspect]
     Active Substance: VENETOCLAX
     Indication: MYELODYSPLASTIC SYNDROME
     Dosage: DAY 2
     Route: 048
     Dates: start: 20180501, end: 20180501

REACTIONS (5)
  - Off label use [Unknown]
  - Infection [Recovered/Resolved]
  - Acute myeloid leukaemia [Not Recovered/Not Resolved]
  - Death [Fatal]
  - Intentional product use issue [Unknown]

NARRATIVE: CASE EVENT DATE: 201805
